FAERS Safety Report 18249199 (Version 2)
Quarter: 2020Q3

REPORT INFORMATION
  Report Type: Spontaneous
  Country: CN (occurrence: CN)
  Receive Date: 20200909
  Receipt Date: 20200911
  Transmission Date: 20201103
  Serious: Yes (Hospitalization, Other)
  Sender: FDA-Public Use
  Company Number: CN-PFIZER INC-2020345498

PATIENT
  Age: 2 Year
  Sex: Female

DRUGS (6)
  1. MEPEM [Suspect]
     Active Substance: MEROPENEM
     Dosage: 40MG/KG, Q8H
     Route: 041
  2. MEPEM [Suspect]
     Active Substance: MEROPENEM
     Indication: AGRANULOCYTOSIS
     Dosage: 40MG/KG, Q8H
     Route: 041
  3. MEPEM [Suspect]
     Active Substance: MEROPENEM
     Dosage: UNK
     Route: 065
     Dates: start: 202008
  4. MEPEM [Suspect]
     Active Substance: MEROPENEM
     Dosage: UNK
  5. MEPEM [Suspect]
     Active Substance: MEROPENEM
     Indication: PYREXIA
     Dosage: UNK
     Route: 065
  6. MEPEM [Suspect]
     Active Substance: MEROPENEM
     Indication: PYREXIA
     Dosage: UNK
     Route: 065

REACTIONS (7)
  - Transplantation complication [Unknown]
  - Pathogen resistance [Unknown]
  - Diarrhoea [Unknown]
  - Hyperpyrexia [Unknown]
  - Agranulocytosis [Unknown]
  - Multi-organ disorder [Unknown]
  - Pyrexia [Unknown]
